FAERS Safety Report 7362155-9 (Version None)
Quarter: 2011Q1

REPORT INFORMATION
  Report Type: 
  Country: None (occurrence: None)
  Receive Date: 20110315
  Receipt Date: 20110315
  Transmission Date: 20110831
  Serious: Yes (Other)
  Sender: FDA-Public Use
  Company Number: None

PATIENT
  Age: 11 Year
  Sex: Male
  Weight: 29.9374 kg

DRUGS (1)
  1. AMOXICILLIN AND CLAVULANATE 400MG/ 5/MG PER 5 NOVOPHARMA LIMITED ML [Suspect]
     Indication: PHARYNGITIS STREPTOCOCCAL
     Dosage: 8ML TWICE A DAY PO
     Route: 048
     Dates: start: 20110305, end: 20110313

REACTIONS (1)
  - DRUG HYPERSENSITIVITY [None]
